FAERS Safety Report 7068842-4 (Version None)
Quarter: 2010Q4

REPORT INFORMATION
  Report Type: 
  Country: None (occurrence: None)
  Receive Date: 20101028
  Receipt Date: 20101025
  Transmission Date: 20110411
  Serious: Yes (Disabling)
  Sender: FDA-Public Use
  Company Number: GXKR2010DE11950

PATIENT

DRUGS (1)
  1. RAMIPRIL 1A PHARMA (NGX) [Suspect]
     Dosage: 5MG-0MG-2.5 MG/DAILY
     Route: 048
     Dates: start: 20101002, end: 20101004

REACTIONS (4)
  - BALANCE DISORDER [None]
  - DIZZINESS [None]
  - IMPAIRED DRIVING ABILITY [None]
  - RESTLESSNESS [None]
